FAERS Safety Report 20838078 (Version 1)
Quarter: 2022Q2

REPORT INFORMATION
  Report Type: Spontaneous
  Country: US (occurrence: US)
  Receive Date: 20220517
  Receipt Date: 20220517
  Transmission Date: 20220721
  Serious: No
  Sender: FDA-Public Use
  Company Number: US-TOLMAR, INC.-22US033855

PATIENT
  Age: 11 Year
  Sex: Female

DRUGS (2)
  1. ELIGARD [Suspect]
     Active Substance: LEUPROLIDE ACETATE
     Indication: Hormone suppression therapy
     Dosage: 30 MILLIGRAM, Q 4 MONTH
     Route: 030
     Dates: start: 2021
  2. ELIGARD [Suspect]
     Active Substance: LEUPROLIDE ACETATE
     Indication: Gender dysphoria
     Dosage: 30 MILLIGRAM, Q 4 MONTH
     Route: 030
     Dates: start: 20220402

REACTIONS (4)
  - Phobia [Unknown]
  - Intentional dose omission [Unknown]
  - Off label use [Unknown]
  - Intercepted product administration error [Unknown]

NARRATIVE: CASE EVENT DATE: 20220402
